FAERS Safety Report 10238089 (Version 1)
Quarter: 2014Q2

REPORT INFORMATION
  Report Type: Spontaneous
  Country: US (occurrence: None)
  Receive Date: 20140613
  Receipt Date: 20140613
  Transmission Date: 20141212
  Serious: Yes (Hospitalization)
  Sender: FDA-Public Use
  Company Number: None

PATIENT
  Age: 62 Year
  Sex: Male

DRUGS (6)
  1. AFINITOR [Suspect]
     Indication: PRODUCT USED FOR UNKNOWN INDICATION
     Route: 048
     Dates: start: 20140523
  2. DOLADID [Concomitant]
  3. MOTRIN [Concomitant]
  4. VICODIN [Concomitant]
  5. NERODINE [Concomitant]
  6. CENTRUM SILVER [Concomitant]

REACTIONS (1)
  - Unevaluable event [None]
